FAERS Safety Report 23436841 (Version 6)
Quarter: 2025Q4

REPORT INFORMATION
  Report Type: Spontaneous
  Country: EU (occurrence: EU)
  Receive Date: 20240124
  Receipt Date: 20251124
  Transmission Date: 20260119
  Serious: Yes (Life-Threatening, Hospitalization, Other)
  Sender: MYLAN
  Company Number: EU-JNJFOC-20240108780

PATIENT
  Age: 63 Year
  Sex: Female

DRUGS (72)
  1. DOXORUBICIN [Suspect]
     Active Substance: DOXORUBICIN
     Indication: Plasma cell myeloma
     Dosage: UNK
  2. DOXORUBICIN [Suspect]
     Active Substance: DOXORUBICIN
     Dosage: UNK
     Route: 065
  3. DOXORUBICIN [Suspect]
     Active Substance: DOXORUBICIN
     Dosage: UNK
     Route: 065
  4. DOXORUBICIN [Suspect]
     Active Substance: DOXORUBICIN
     Dosage: UNK
  5. LENALIDOMIDE [Suspect]
     Active Substance: LENALIDOMIDE
     Indication: Plasma cell myeloma
     Dosage: KRD REGIMEN
  6. LENALIDOMIDE [Suspect]
     Active Substance: LENALIDOMIDE
     Dosage: KRD REGIMEN
  7. LENALIDOMIDE [Suspect]
     Active Substance: LENALIDOMIDE
     Dosage: KRD REGIMEN
     Route: 065
  8. LENALIDOMIDE [Suspect]
     Active Substance: LENALIDOMIDE
     Dosage: KRD REGIMEN
     Route: 065
  9. LENALIDOMIDE [Suspect]
     Active Substance: LENALIDOMIDE
     Dosage: DRD REGIMEN
  10. LENALIDOMIDE [Suspect]
     Active Substance: LENALIDOMIDE
     Dosage: DRD REGIMEN
  11. LENALIDOMIDE [Suspect]
     Active Substance: LENALIDOMIDE
     Dosage: DRD REGIMEN
     Route: 065
  12. LENALIDOMIDE [Suspect]
     Active Substance: LENALIDOMIDE
     Dosage: DRD REGIMEN
     Route: 065
  13. LENALIDOMIDE [Suspect]
     Active Substance: LENALIDOMIDE
     Dosage: RD COMBINATION
  14. LENALIDOMIDE [Suspect]
     Active Substance: LENALIDOMIDE
     Dosage: RD COMBINATION
     Route: 065
  15. LENALIDOMIDE [Suspect]
     Active Substance: LENALIDOMIDE
     Dosage: RD COMBINATION
  16. LENALIDOMIDE [Suspect]
     Active Substance: LENALIDOMIDE
     Dosage: RD COMBINATION
     Route: 065
  17. VELCADE [Suspect]
     Active Substance: BORTEZOMIB
     Indication: Plasma cell myeloma
     Dosage: 3.5MG/VIAL
     Route: 065
  18. VELCADE [Suspect]
     Active Substance: BORTEZOMIB
     Dosage: 3.5MG/VIAL
  19. VELCADE [Suspect]
     Active Substance: BORTEZOMIB
     Dosage: 3.5MG/VIAL
  20. VELCADE [Suspect]
     Active Substance: BORTEZOMIB
     Dosage: 3.5MG/VIAL
     Route: 065
  21. VELCADE [Suspect]
     Active Substance: BORTEZOMIB
     Dosage: PVD REGIMEN
     Route: 065
  22. VELCADE [Suspect]
     Active Substance: BORTEZOMIB
     Dosage: PVD REGIMEN
  23. VELCADE [Suspect]
     Active Substance: BORTEZOMIB
     Dosage: PVD REGIMEN
  24. VELCADE [Suspect]
     Active Substance: BORTEZOMIB
     Dosage: PVD REGIMEN
     Route: 065
  25. SELINEXOR [Suspect]
     Active Substance: SELINEXOR
     Indication: Plasma cell myeloma
     Dosage: UNK
  26. SELINEXOR [Suspect]
     Active Substance: SELINEXOR
     Dosage: UNK
     Route: 065
  27. SELINEXOR [Suspect]
     Active Substance: SELINEXOR
     Dosage: UNK
     Route: 065
  28. SELINEXOR [Suspect]
     Active Substance: SELINEXOR
     Dosage: UNK
  29. DEXAMETHASONE [Suspect]
     Active Substance: DEXAMETHASONE
     Indication: Plasma cell myeloma
     Dosage: RD COMBINATION
  30. DEXAMETHASONE [Suspect]
     Active Substance: DEXAMETHASONE
     Dosage: RD COMBINATION
  31. DEXAMETHASONE [Suspect]
     Active Substance: DEXAMETHASONE
     Dosage: RD COMBINATION
     Route: 065
  32. DEXAMETHASONE [Suspect]
     Active Substance: DEXAMETHASONE
     Dosage: RD COMBINATION
     Route: 065
  33. DEXAMETHASONE [Suspect]
     Active Substance: DEXAMETHASONE
     Dosage: DRD REGIMEN
     Route: 065
  34. DEXAMETHASONE [Suspect]
     Active Substance: DEXAMETHASONE
     Dosage: DRD REGIMEN
     Route: 065
  35. DEXAMETHASONE [Suspect]
     Active Substance: DEXAMETHASONE
     Dosage: DRD REGIMEN
  36. DEXAMETHASONE [Suspect]
     Active Substance: DEXAMETHASONE
     Dosage: DRD REGIMEN
  37. DEXAMETHASONE [Suspect]
     Active Substance: DEXAMETHASONE
     Dosage: KRD REGIMEN
     Route: 065
  38. DEXAMETHASONE [Suspect]
     Active Substance: DEXAMETHASONE
     Dosage: KRD REGIMEN
  39. DEXAMETHASONE [Suspect]
     Active Substance: DEXAMETHASONE
     Dosage: KRD REGIMEN
  40. DEXAMETHASONE [Suspect]
     Active Substance: DEXAMETHASONE
     Dosage: KRD REGIMEN
     Route: 065
  41. DEXAMETHASONE [Suspect]
     Active Substance: DEXAMETHASONE
     Dosage: PVD REGIMEN
  42. DEXAMETHASONE [Suspect]
     Active Substance: DEXAMETHASONE
     Dosage: PVD REGIMEN
  43. DEXAMETHASONE [Suspect]
     Active Substance: DEXAMETHASONE
     Dosage: PVD REGIMEN
     Route: 065
  44. DEXAMETHASONE [Suspect]
     Active Substance: DEXAMETHASONE
     Dosage: PVD REGIMEN
     Route: 065
  45. PREDNISONE [Suspect]
     Active Substance: PREDNISONE
     Indication: Plasma cell myeloma
     Dosage: MP REGIMEN
  46. PREDNISONE [Suspect]
     Active Substance: PREDNISONE
     Dosage: MP REGIMEN
     Route: 065
  47. PREDNISONE [Suspect]
     Active Substance: PREDNISONE
     Dosage: MP REGIMEN
     Route: 065
  48. PREDNISONE [Suspect]
     Active Substance: PREDNISONE
     Dosage: MP REGIMEN
  49. CARFILZOMIB [Suspect]
     Active Substance: CARFILZOMIB
     Indication: Plasma cell myeloma
     Dosage: KRD REGIMEN
  50. CARFILZOMIB [Suspect]
     Active Substance: CARFILZOMIB
     Dosage: KRD REGIMEN
     Route: 065
  51. CARFILZOMIB [Suspect]
     Active Substance: CARFILZOMIB
     Dosage: KRD REGIMEN
     Route: 065
  52. CARFILZOMIB [Suspect]
     Active Substance: CARFILZOMIB
     Dosage: KRD REGIMEN
  53. IXAZOMIB [Suspect]
     Active Substance: IXAZOMIB
     Indication: Plasma cell myeloma
     Dosage: UNK
  54. IXAZOMIB [Suspect]
     Active Substance: IXAZOMIB
     Dosage: UNK
     Route: 065
  55. IXAZOMIB [Suspect]
     Active Substance: IXAZOMIB
     Dosage: UNK
     Route: 065
  56. IXAZOMIB [Suspect]
     Active Substance: IXAZOMIB
     Dosage: UNK
  57. POMALIDOMIDE [Suspect]
     Active Substance: POMALIDOMIDE
     Indication: Plasma cell myeloma
     Dosage: PVD REGIMEN
  58. POMALIDOMIDE [Suspect]
     Active Substance: POMALIDOMIDE
     Dosage: PVD REGIMEN
     Route: 065
  59. POMALIDOMIDE [Suspect]
     Active Substance: POMALIDOMIDE
     Dosage: PVD REGIMEN
     Route: 065
  60. POMALIDOMIDE [Suspect]
     Active Substance: POMALIDOMIDE
     Dosage: PVD REGIMEN
  61. MELPHALAN [Suspect]
     Active Substance: MELPHALAN
     Indication: Plasma cell myeloma
     Dosage: MP REGIMEN
  62. MELPHALAN [Suspect]
     Active Substance: MELPHALAN
     Dosage: MP REGIMEN
     Route: 065
  63. MELPHALAN [Suspect]
     Active Substance: MELPHALAN
     Dosage: MP REGIMEN
     Route: 065
  64. MELPHALAN [Suspect]
     Active Substance: MELPHALAN
     Dosage: MP REGIMEN
  65. DARATUMUMAB [Suspect]
     Active Substance: DARATUMUMAB
     Indication: Plasma cell myeloma
     Dosage: DRD REGIMEN
  66. DARATUMUMAB [Suspect]
     Active Substance: DARATUMUMAB
     Dosage: DRD REGIMEN
     Route: 065
  67. DARATUMUMAB [Suspect]
     Active Substance: DARATUMUMAB
     Dosage: DRD REGIMEN
     Route: 065
  68. DARATUMUMAB [Suspect]
     Active Substance: DARATUMUMAB
     Dosage: DRD REGIMEN
  69. BELANTAMAB MAFODOTIN [Concomitant]
     Active Substance: BELANTAMAB MAFODOTIN
     Indication: Plasma cell myeloma
     Dosage: UNK
  70. BELANTAMAB MAFODOTIN [Concomitant]
     Active Substance: BELANTAMAB MAFODOTIN
     Dosage: UNK
     Route: 065
  71. BELANTAMAB MAFODOTIN [Concomitant]
     Active Substance: BELANTAMAB MAFODOTIN
     Dosage: UNK
     Route: 065
  72. BELANTAMAB MAFODOTIN [Concomitant]
     Active Substance: BELANTAMAB MAFODOTIN
     Dosage: UNK

REACTIONS (12)
  - COVID-19 [Unknown]
  - Disease progression [Unknown]
  - Toxicity to various agents [Unknown]
  - Therapeutic product effect incomplete [Unknown]
  - Plasma cell myeloma [Unknown]
  - Neuropathy peripheral [Unknown]
  - Neutropenia [Unknown]
  - Drug ineffective [Unknown]
  - Liver function test increased [Unknown]
  - Asthenia [Unknown]
  - Infection [Unknown]
  - Intentional product use issue [Unknown]

NARRATIVE: CASE EVENT DATE: 20170101
